FAERS Safety Report 15570516 (Version 2)
Quarter: 2018Q4

REPORT INFORMATION
  Report Type: Spontaneous
  Country: NL (occurrence: NL)
  Receive Date: 20181031
  Receipt Date: 20181207
  Transmission Date: 20190205
  Serious: Yes (Other)
  Sender: FDA-Public Use
  Company Number: NL-NOVOPROD-626331

PATIENT
  Age: 44 Year
  Sex: Female
  Weight: 75 kg

DRUGS (1)
  1. FIASP [Suspect]
     Active Substance: INSULIN ASPART
     Indication: TYPE 1 DIABETES MELLITUS
     Dosage: 45 UNIT BASAL DOSE AND BOLUS DOSE DEPENDED ON CARBOHYDRATE INTAKE
     Route: 058
     Dates: start: 201806, end: 20180902

REACTIONS (14)
  - Balance disorder [Recovered/Resolved]
  - Fall [Recovered/Resolved]
  - Hypersensitivity [Recovered/Resolved]
  - Hypersomnia [Recovered/Resolved]
  - Fatigue [Recovered/Resolved]
  - Infusion site inflammation [Recovered/Resolved]
  - Infusion site discolouration [Recovered/Resolved]
  - Gait disturbance [Recovered/Resolved]
  - Speech disorder [Recovered/Resolved]
  - Infusion site swelling [Recovered/Resolved]
  - Hyperglycaemia [Recovered/Resolved]
  - Disturbance in attention [Recovered/Resolved]
  - Infusion site pain [Recovered/Resolved]
  - Hypoglycaemia [Recovered/Resolved]

NARRATIVE: CASE EVENT DATE: 201807
